FAERS Safety Report 8608774-0 (Version None)
Quarter: 2012Q3

REPORT INFORMATION
  Report Type: 
  Country: None (occurrence: None)
  Receive Date: 20120821
  Receipt Date: 20120809
  Transmission Date: 20120928
  Serious: Yes (Hospitalization)
  Sender: FDA-Public Use
  Company Number: US-ROCHE-1077088

PATIENT
  Sex: Male

DRUGS (3)
  1. PEGASYS [Suspect]
     Indication: HEPATITIS C
     Dates: start: 20120523
  2. COPEGUS [Suspect]
     Indication: HEPATITIS C
     Route: 065
     Dates: start: 20120523
  3. TELAPREVIR [Suspect]
     Indication: HEPATITIS C
     Route: 065
     Dates: start: 20120523

REACTIONS (9)
  - HAEMORRHAGE [None]
  - ILL-DEFINED DISORDER [None]
  - SWELLING FACE [None]
  - ANAEMIA [None]
  - PLATELET COUNT DECREASED [None]
  - BONE SWELLING [None]
  - PNEUMONIA [None]
  - FLUID RETENTION [None]
  - VOMITING [None]
